FAERS Safety Report 8117331-4 (Version None)
Quarter: 2012Q1

REPORT INFORMATION
  Report Type: 
  Country: None (occurrence: None)
  Receive Date: 20120206
  Receipt Date: 20120127
  Transmission Date: 20120608
  Serious: Yes (Hospitalization)
  Sender: FDA-Public Use
  Company Number: US-ASTRAZENECA-2011SE66261

PATIENT
  Age: 50 Year
  Sex: Female
  Weight: 67.1 kg

DRUGS (3)
  1. PRAVASTATIN [Concomitant]
  2. CRESTOR [Suspect]
     Route: 048
  3. CRESTOR [Suspect]
     Route: 048

REACTIONS (5)
  - MALAISE [None]
  - ASTHENIA [None]
  - DRUG PRESCRIBING ERROR [None]
  - BLOOD PRESSURE INCREASED [None]
  - DIZZINESS [None]
